FAERS Safety Report 24285863 (Version 1)
Quarter: 2024Q3

REPORT INFORMATION
  Report Type: Spontaneous
  Country: ES (occurrence: ES)
  Receive Date: 20240905
  Receipt Date: 20240905
  Transmission Date: 20241017
  Serious: Yes (Other)
  Sender: AMGEN
  Company Number: ES-AMGEN-ESPSP2024174664

PATIENT
  Sex: Female

DRUGS (3)
  1. ADALIMUMAB [Suspect]
     Active Substance: ADALIMUMAB
     Indication: Inflammatory bowel disease
     Dosage: UNK
     Route: 065
  2. ADALIMUMAB [Suspect]
     Active Substance: ADALIMUMAB
     Indication: Rheumatic disorder
  3. ADALIMUMAB [Suspect]
     Active Substance: ADALIMUMAB
     Indication: Musculoskeletal disorder

REACTIONS (16)
  - Inflammatory bowel disease [Unknown]
  - Abortion spontaneous [Unknown]
  - Rheumatic disorder [Unknown]
  - Musculoskeletal disorder [Unknown]
  - Pre-eclampsia [Unknown]
  - Labour induction [Unknown]
  - Caesarean section [Unknown]
  - Breech presentation [Unknown]
  - Failed induction of labour [Unknown]
  - Cephalo-pelvic disproportion [Unknown]
  - Premature delivery [Unknown]
  - Maternal exposure during pregnancy [Unknown]
  - Infection [Unknown]
  - Urinary tract infection [Unknown]
  - Respiratory tract infection [Unknown]
  - Therapy interrupted [Unknown]
